FAERS Safety Report 17466293 (Version 1)
Quarter: 2020Q1

REPORT INFORMATION
  Report Type: Report from Study
  Country: IN (occurrence: IN)
  Receive Date: 20200227
  Receipt Date: 20200227
  Transmission Date: 20200409
  Serious: Yes (Other)
  Sender: FDA-Public Use
  Company Number: IN-AUROBINDO-AUR-APL-2020-010075

PATIENT
  Sex: Female

DRUGS (5)
  1. MELPHALAN INJECTION [Suspect]
     Active Substance: MELPHALAN
     Indication: RETINOBLASTOMA
     Dosage: 7.5 MILLIGRAM, CYCLICAL
     Route: 013
  2. TOPOTECAN [Suspect]
     Active Substance: TOPOTECAN HYDROCHLORIDE
     Dosage: 1 MILLIGRAM, CYCLICAL
     Route: 013
  3. MELPHALAN INJECTION [Suspect]
     Active Substance: MELPHALAN
     Dosage: 7.5 MILLIGRAM, CYCLICAL
     Route: 013
  4. MELPHALAN INJECTION [Suspect]
     Active Substance: MELPHALAN
     Dosage: 7.5 MILLIGRAM, CYCLICAL
     Route: 013
  5. TOPOTECAN [Suspect]
     Active Substance: TOPOTECAN HYDROCHLORIDE
     Indication: RETINOBLASTOMA
     Dosage: 1 MILLIGRAM, CYCLICAL
     Route: 013

REACTIONS (3)
  - Toxic optic neuropathy [Unknown]
  - Product use issue [Unknown]
  - Product use in unapproved indication [Unknown]
